FAERS Safety Report 5723213-5 (Version None)
Quarter: 2008Q2

REPORT INFORMATION
  Report Type: 
  Country: None (occurrence: None)
  Receive Date: 20080428
  Receipt Date: 20080410
  Transmission Date: 20081010
  Serious: Yes (Hospitalization)
  Sender: FDA-Public Use
  Company Number: 2008BM000067

PATIENT
  Age: 15 Year
  Sex: Male
  Weight: 22 kg

DRUGS (6)
  1. NAGLAZYME [Suspect]
     Indication: MUCOPOLYSACCHARIDOSIS VI
     Dosage: 1 MG/KG; QW; IV
     Route: 042
     Dates: start: 20061101, end: 20080320
  2. DIAMOX SRC [Concomitant]
  3. ZANTAC [Concomitant]
  4. LORATADINE [Concomitant]
  5. MONTELUKAST SODIUM [Concomitant]
  6. FLUVOXAMINE MALEATE [Concomitant]

REACTIONS (10)
  - ANAEMIA [None]
  - HAEMATURIA [None]
  - INFUSION SITE ERYTHEMA [None]
  - INFUSION SITE PAIN [None]
  - INFUSION SITE SWELLING [None]
  - INJURY [None]
  - NEPHROLITHIASIS [None]
  - SEPSIS [None]
  - STAPHYLOCOCCAL INFECTION [None]
  - WHITE BLOOD CELL COUNT DECREASED [None]
